FAERS Safety Report 18583660 (Version 1)
Quarter: 2020Q4

REPORT INFORMATION
  Report Type: Spontaneous
  Country: AR (occurrence: AR)
  Receive Date: 20201207
  Receipt Date: 20201207
  Transmission Date: 20210114
  Serious: Yes (Hospitalization, Other)
  Sender: FDA-Public Use
  Company Number: AR-AMGEN-ARGSP2020197580

PATIENT
  Age: 63 Year
  Sex: Female

DRUGS (3)
  1. ENBREL [Suspect]
     Active Substance: ETANERCEPT
     Dosage: UNSPECIFIED DOSE AND FREQUENCY
     Route: 065
     Dates: start: 2000, end: 2013
  2. ENBREL [Suspect]
     Active Substance: ETANERCEPT
     Dosage: 25 MG, 2X/WEEK
     Route: 065
     Dates: start: 20201111
  3. ENBREL [Suspect]
     Active Substance: ETANERCEPT
     Indication: RHEUMATOID ARTHRITIS
     Dosage: UNSPECIFIED DOSE AND FREQUENCY
     Route: 065

REACTIONS (11)
  - Post herpetic neuralgia [Unknown]
  - Breast cancer [Unknown]
  - Hypersensitivity [Unknown]
  - Condition aggravated [Unknown]
  - Lip swelling [Unknown]
  - Herpes zoster [Unknown]
  - Pain in extremity [Unknown]
  - Monoplegia [Unknown]
  - Injection site erythema [Unknown]
  - Limb mass [Unknown]
  - Skin plaque [Unknown]

NARRATIVE: CASE EVENT DATE: 2017
